FAERS Safety Report 5512466-4 (Version None)
Quarter: 2007Q4

REPORT INFORMATION
  Report Type: 
  Country: None (occurrence: None)
  Receive Date: 20071112
  Receipt Date: 20070305
  Transmission Date: 20080405
  Serious: No
  Sender: FDA-Public Use
  Company Number: A0641925A

PATIENT
  Age: 53 Year
  Sex: Female

DRUGS (10)
  1. AVANDAMET [Suspect]
     Dosage: 1TAB PER DAY
     Route: 048
  2. ZOCOR [Concomitant]
  3. NITROSTAT [Concomitant]
  4. ZYRTEC [Concomitant]
  5. NEXIUM [Concomitant]
  6. TOPROL-XL [Concomitant]
  7. IMDUR [Concomitant]
  8. SYNTHROID [Concomitant]
  9. LOTRIAL [Concomitant]
  10. ULTRAM [Concomitant]

REACTIONS (6)
  - ABDOMINAL PAIN UPPER [None]
  - HEART RATE DECREASED [None]
  - HYPERHIDROSIS [None]
  - INSOMNIA [None]
  - NERVOUSNESS [None]
  - TREMOR [None]
